FAERS Safety Report 20643371 (Version 1)
Quarter: 2022Q1

REPORT INFORMATION
  Report Type: Spontaneous
  Country: FR (occurrence: FR)
  Receive Date: 20220328
  Receipt Date: 20220328
  Transmission Date: 20220423
  Serious: Yes (Hospitalization, Other)
  Sender: FDA-Public Use
  Company Number: None

PATIENT
  Age: 89 Year
  Sex: Male
  Weight: 65.5 kg

DRUGS (4)
  1. RIFAMPIN [Suspect]
     Active Substance: RIFAMPIN
     Indication: Septic arthritis staphylococcal
     Dosage: UNK
     Route: 048
     Dates: start: 20211229, end: 20220117
  2. BACTRIM [Suspect]
     Active Substance: SULFAMETHOXAZOLE\TRIMETHOPRIM
     Indication: Septic arthritis staphylococcal
     Dosage: UNK
     Route: 048
     Dates: start: 20220104, end: 20220117
  3. CEFAZOLINE HOSPIRA [Concomitant]
     Indication: Septic arthritis staphylococcal
     Dosage: UNK
     Route: 065
     Dates: start: 20211219, end: 20220104
  4. CEFAZOLINE HOSPIRA [Concomitant]
     Dates: start: 20220117

REACTIONS (1)
  - Immune thrombocytopenia [Recovered/Resolved]
